FAERS Safety Report 8819971 (Version 2)
Quarter: 2012Q4

REPORT INFORMATION
  Report Type: 
  Country: US (occurrence: US)
  Receive Date: 20121001
  Receipt Date: 20121108
  Transmission Date: 20130627
  Serious: No
  Sender: FDA-Public Use
  Company Number: US-PFIZER INC-2012241800

PATIENT
  Age: 60 Year
  Sex: Female
  Weight: 74.83 kg

DRUGS (4)
  1. RELPAX [Suspect]
     Indication: MIGRAINE
     Dosage: 40 mg, as needed
     Dates: start: 2007
  2. DEPAKOTE [Suspect]
     Indication: MIGRAINE PROPHYLAXIS
     Dosage: 250 mg in morning and 500 mg at night
     Dates: start: 2009
  3. TOPAMAX [Suspect]
     Indication: MIGRAINE
     Dosage: UNK
  4. VYTORIN [Concomitant]
     Indication: BLOOD PRESSURE HIGH
     Dosage: 10/20 mg, daily

REACTIONS (1)
  - Drug ineffective [Recovered/Resolved]
